FAERS Safety Report 6961215-1 (Version None)
Quarter: 2010Q3

REPORT INFORMATION
  Report Type: 
  Country: None (occurrence: None)
  Receive Date: 20100901
  Receipt Date: 20100831
  Transmission Date: 20110219
  Serious: Yes (Hospitalization)
  Sender: FDA-Public Use
  Company Number: A0875733A

PATIENT
  Age: 65 Year
  Sex: Female
  Weight: 70 kg

DRUGS (1)
  1. ALLI [Suspect]
     Indication: WEIGHT LOSS DIET
     Route: 048
     Dates: start: 20100730, end: 20100806

REACTIONS (5)
  - BREAST PAIN [None]
  - DEFAECATION URGENCY [None]
  - FATIGUE [None]
  - FREQUENT BOWEL MOVEMENTS [None]
  - PANCREATITIS ACUTE [None]
